FAERS Safety Report 10030789 (Version 1)
Quarter: 2014Q1

REPORT INFORMATION
  Report Type: Spontaneous
  Country: US (occurrence: US)
  Receive Date: 20140323
  Receipt Date: 20140323
  Transmission Date: 20141002
  Serious: No
  Sender: FDA-Public Use
  Company Number: US-ALLERGAN-1314170US

PATIENT
  Age: 43 Year
  Sex: Female

DRUGS (3)
  1. LATISSE 0.03% [Suspect]
     Indication: GROWTH OF EYELASHES
     Dosage: 2 GTT, QHS
  2. LATISSE 0.03% [Suspect]
     Dosage: 4 GTT, QHS
  3. LATISSE 0.03% [Suspect]
     Dosage: 3 GTT, QHS

REACTIONS (4)
  - Trichorrhexis [Unknown]
  - Madarosis [Unknown]
  - Madarosis [Unknown]
  - Erythema of eyelid [Recovered/Resolved]
